FAERS Safety Report 9285972 (Version 1)
Quarter: 2013Q2

REPORT INFORMATION
  Report Type: Spontaneous
  Country: US (occurrence: None)
  Receive Date: 20130510
  Receipt Date: 20130510
  Transmission Date: 20140414
  Serious: Yes (Other)
  Sender: FDA-Public Use
  Company Number: None

PATIENT
  Age: 50 Year
  Sex: Female
  Weight: 120.2 kg

DRUGS (1)
  1. CYMBALTA [Suspect]
     Indication: DEPRESSION
     Dates: start: 20130415

REACTIONS (12)
  - Abdominal pain upper [None]
  - Nausea [None]
  - Chromaturia [None]
  - Urine odour abnormal [None]
  - Vomiting [None]
  - Blister [None]
  - Insomnia [None]
  - Hypertension [None]
  - Hyperhidrosis [None]
  - Pharyngeal oedema [None]
  - Eructation [None]
  - Cardiac disorder [None]
